FAERS Safety Report 5643850-6 (Version None)
Quarter: 2008Q1

REPORT INFORMATION
  Report Type: 
  Country: None (occurrence: None)
  Receive Date: 20080226
  Receipt Date: 20080218
  Transmission Date: 20080703
  Serious: Yes (Other)
  Sender: FDA-Public Use
  Company Number: 2008SP002541

PATIENT
  Age: 92 Year
  Sex: Male
  Weight: 68.9467 kg

DRUGS (5)
  1. CLARITIN [Suspect]
     Indication: RHINORRHOEA
     Dosage: 1DF; ONCE PO
     Route: 048
     Dates: start: 20080130
  2. ATROVENT [Concomitant]
  3. TOPORAL [Concomitant]
  4. LASIX [Concomitant]
  5. LIPITOR [Concomitant]

REACTIONS (5)
  - CHEST DISCOMFORT [None]
  - DEHYDRATION [None]
  - DIARRHOEA [None]
  - NAUSEA [None]
  - VOMITING [None]
